FAERS Safety Report 11147779 (Version 1)
Quarter: 2015Q2

REPORT INFORMATION
  Report Type: Spontaneous
  Country: US (occurrence: None)
  Receive Date: 20150528
  Receipt Date: 20150528
  Transmission Date: 20150821
  Serious: Yes (Hospitalization)
  Sender: FDA-Public Use
  Company Number: None

PATIENT
  Age: 75 Year
  Sex: Male
  Weight: 69.1 kg

DRUGS (1)
  1. EFAVIRENZ/EMTRICITABINE/TENOFOVIR [Suspect]
     Active Substance: EFAVIRENZ\EMTRICITABINE\TENOFOVIR DISOPROXIL FUMARATE
     Indication: HIV INFECTION
     Dates: start: 20141001, end: 20150324

REACTIONS (4)
  - Diverticulum [None]
  - Drug-induced liver injury [None]
  - Pancreatitis [None]
  - Bile duct stone [None]

NARRATIVE: CASE EVENT DATE: 20150324
